FAERS Safety Report 7914645-5 (Version None)
Quarter: 2011Q4

REPORT INFORMATION
  Report Type: 
  Country: None (occurrence: None)
  Receive Date: 20111115
  Receipt Date: 20111109
  Transmission Date: 20120403
  Serious: Yes (Other)
  Sender: FDA-Public Use
  Company Number: PHEH2011US008985

PATIENT
  Sex: Female

DRUGS (1)
  1. EXELON [Suspect]
     Dosage: 1.5 MG, QD
     Route: 048

REACTIONS (2)
  - RENAL FAILURE [None]
  - NEOPLASM MALIGNANT [None]
